FAERS Safety Report 26208399 (Version 1)
Quarter: 2025Q4

REPORT INFORMATION
  Report Type: Spontaneous
  Country: US (occurrence: US)
  Receive Date: 20251229
  Receipt Date: 20251229
  Transmission Date: 20260118
  Serious: Yes (Other)
  Sender: ROCHE
  Company Number: US-ROCHE-10000467932

PATIENT
  Age: 52 Year
  Sex: Male

DRUGS (5)
  1. RITUXIMAB [Suspect]
     Active Substance: RITUXIMAB
     Indication: Paraneoplastic pemphigus
  2. CYCLOPHOSPHAMIDE [Suspect]
     Active Substance: CYCLOPHOSPHAMIDE
     Indication: Paraneoplastic pemphigus
  3. DOXORUBICIN [Suspect]
     Active Substance: DOXORUBICIN
     Indication: Paraneoplastic pemphigus
  4. VINCRISTINE [Suspect]
     Active Substance: VINCRISTINE
     Indication: Paraneoplastic pemphigus
  5. PREDNISONE [Suspect]
     Active Substance: PREDNISONE
     Indication: Paraneoplastic pemphigus

REACTIONS (1)
  - Infection [Unknown]
